FAERS Safety Report 18578453 (Version 1)
Quarter: 2020Q4

REPORT INFORMATION
  Report Type: Spontaneous
  Country: FR (occurrence: FR)
  Receive Date: 20201204
  Receipt Date: 20201204
  Transmission Date: 20210114
  Serious: Yes (Life-Threatening, Other)
  Sender: FDA-Public Use
  Company Number: FR-BRISTOL-MYERS SQUIBB COMPANY-BMS-2020-102046

PATIENT
  Age: 77 Year
  Sex: Male
  Weight: 90 kg

DRUGS (2)
  1. SPRYCEL [Suspect]
     Active Substance: DASATINIB
     Indication: MYELOID LEUKAEMIA
     Dosage: 1 DOSAGE FORM, 1 DAY
     Route: 048
     Dates: start: 2019
  2. VAXIGRIPTETRA [Suspect]
     Active Substance: INFLUENZA VIRUS VACCINE QUADRIVALENT TYPE A+B
     Indication: PROPHYLAXIS
     Dosage: 1 DOSAGE FORM, 1 DAY
     Route: 030
     Dates: start: 20201015, end: 20201015

REACTIONS (1)
  - Guillain-Barre syndrome [Recovering/Resolving]

NARRATIVE: CASE EVENT DATE: 20201031
